FAERS Safety Report 7469282-6 (Version None)
Quarter: 2011Q2

REPORT INFORMATION
  Report Type: 
  Country: None (occurrence: None)
  Receive Date: 20110429
  Receipt Date: 20110413
  Transmission Date: 20111010
  Serious: Yes (Hospitalization)
  Sender: FDA-Public Use
  Company Number: 2011040063

PATIENT
  Age: 24 Year
  Sex: Female

DRUGS (1)
  1. MESALAMINE [Suspect]
     Indication: COLITIS ULCERATIVE
     Dosage: 1600 MG (800 MG, 2 IN 1 D)

REACTIONS (6)
  - ANTINEUTROPHIL CYTOPLASMIC ANTIBODY POSITIVE [None]
  - EOSINOPHILIA [None]
  - WEGENER'S GRANULOMATOSIS [None]
  - PLEURAL EFFUSION [None]
  - HEART RATE INCREASED [None]
  - LUNG ABSCESS [None]
